FAERS Safety Report 9400339 (Version 1)
Quarter: 2013Q3

REPORT INFORMATION
  Report Type: Spontaneous
  Country: GB (occurrence: GB)
  Receive Date: 20130715
  Receipt Date: 20130715
  Transmission Date: 20140515
  Serious: Yes (Other)
  Sender: FDA-Public Use
  Company Number: PHHY2013GB073703

PATIENT
  Age: 13 Year
  Sex: Male

DRUGS (1)
  1. CLONIDINE [Suspect]
     Indication: OFF LABEL USE
     Route: 048

REACTIONS (2)
  - Petit mal epilepsy [Unknown]
  - Drug withdrawal syndrome [Unknown]
